FAERS Safety Report 4668308-2 (Version None)
Quarter: 2005Q2

REPORT INFORMATION
  Report Type: 
  Country: None (occurrence: None)
  Receive Date: 20050519
  Receipt Date: 20050502
  Transmission Date: 20051028
  Serious: Yes (Hospitalization)
  Sender: FDA-Public Use
  Company Number: 2005070783

PATIENT
  Age: 66 Year
  Sex: Female
  Weight: 83.0083 kg

DRUGS (7)
  1. BEXTRA [Suspect]
     Indication: ARTHROPATHY
     Dosage: 10 MG, ORAL
     Route: 048
     Dates: start: 20040301
  2. METHOTREXATE [Suspect]
     Indication: RHEUMATOID ARTHRITIS
     Dosage: ORAL
     Route: 048
     Dates: start: 20050201, end: 20050401
  3. FOLIC ACID [Suspect]
     Indication: RHEUMATOID ARTHRITIS
     Dosage: ORAL
     Route: 048
     Dates: start: 20050201, end: 20050427
  4. MOBIC [Concomitant]
  5. ALDACTIDE (HYDROFLUMETHIAZIDE, SPIRONOLACTONE) [Concomitant]
  6. CALCIUM (CALCIUM) [Concomitant]
  7. CENTRUM (MINERALS NOS, VITAMINS NOS) [Concomitant]

REACTIONS (7)
  - ACNE [None]
  - FORMICATION [None]
  - KNEE ARTHROPLASTY [None]
  - OSTEOARTHRITIS [None]
  - PRURITUS [None]
  - RHEUMATOID ARTHRITIS [None]
  - SKIN INDURATION [None]
